FAERS Safety Report 13500110 (Version 1)
Quarter: 2017Q2

REPORT INFORMATION
  Report Type: Spontaneous
  Country: US (occurrence: US)
  Receive Date: 20170501
  Receipt Date: 20170501
  Transmission Date: 20170830
  Serious: No
  Sender: FDA-Public Use
  Company Number: None

PATIENT
  Age: 57 Year
  Sex: Male
  Weight: 78.75 kg

DRUGS (2)
  1. BASE INSULIN SLIDING SCALE [Concomitant]
  2. LEVEMIR [Suspect]
     Active Substance: INSULIN DETEMIR
     Route: 058
     Dates: start: 20170324, end: 20170403

REACTIONS (1)
  - Hypoglycaemia [None]

NARRATIVE: CASE EVENT DATE: 20170404
